FAERS Safety Report 6672411-5 (Version None)
Quarter: 2010Q2

REPORT INFORMATION
  Report Type: 
  Country: None (occurrence: None)
  Receive Date: 20100408
  Receipt Date: 20100324
  Transmission Date: 20101027
  Serious: Yes (Hospitalization)
  Sender: FDA-Public Use
  Company Number: US-ELI_LILLY_AND_COMPANY-US201003008626

PATIENT
  Sex: Female

DRUGS (8)
  1. EVISTA [Suspect]
     Indication: OSTEOPOROSIS
     Dosage: 60 MG, DAILY (1/D)
  2. METHAZOLAMIDE [Concomitant]
     Indication: GLAUCOMA
  3. ASPIRIN [Concomitant]
     Dosage: 81 MG, UNK
  4. HYOSCYAMINE [Concomitant]
     Dosage: 0.125 MG, UNK
  5. OSCAL D [Concomitant]
  6. PREVACID [Concomitant]
  7. PRILOSEC [Concomitant]
  8. MULTI-VITAMIN [Concomitant]

REACTIONS (3)
  - DYSPHAGIA [None]
  - EATING DISORDER [None]
  - WEIGHT DECREASED [None]
